FAERS Safety Report 8775334 (Version 1)
Quarter: 2012Q4

REPORT INFORMATION
  Report Type: 
  Country: US (occurrence: US)
  Receive Date: 20120910
  Receipt Date: 20120910
  Transmission Date: 20130627
  Serious: Yes (Hospitalization, Other)
  Sender: FDA-Public Use
  Company Number: US-009507513-2011SP031790

PATIENT

DRUGS (1)
  1. NUVARING [Suspect]
     Indication: CONTRACEPTION
     Dates: start: 20090722, end: 20091006

REACTIONS (11)
  - Urinary retention postoperative [Unknown]
  - Pulmonary embolism [Recovered/Resolved]
  - Deep vein thrombosis [Recovering/Resolving]
  - Hand fracture [Unknown]
  - Hypercoagulation [Unknown]
  - Emotional disorder [Unknown]
  - Mental disorder [Unknown]
  - Hypertension [Unknown]
  - Gallbladder disorder [Unknown]
  - Cholecystectomy [Unknown]
  - Chest pain [Unknown]
